FAERS Safety Report 6489629-7 (Version None)
Quarter: 2009Q4

REPORT INFORMATION
  Report Type: 
  Country: None (occurrence: None)
  Receive Date: 20091207
  Receipt Date: 20091123
  Transmission Date: 20100525
  Serious: Yes (Hospitalization, Other)
  Sender: FDA-Public Use
  Company Number: 2009AC000360

PATIENT
  Age: 79 Year
  Sex: Male

DRUGS (7)
  1. DIGOXIN [Suspect]
     Dosage: 0.125 MG; QD; PO
     Route: 048
     Dates: start: 20050301
  2. TENORMIN [Concomitant]
  3. CORDARONE [Concomitant]
  4. LISINOPRIL [Concomitant]
  5. ATENOLOL [Concomitant]
  6. ASPIRIN [Concomitant]
  7. AMIODARONE [Concomitant]

REACTIONS (9)
  - ATRIAL FIBRILLATION [None]
  - BLOOD PRESSURE INCREASED [None]
  - CARDIOMYOPATHY [None]
  - CONTUSION [None]
  - ECONOMIC PROBLEM [None]
  - FEMUR FRACTURE [None]
  - HAEMORRHAGE INTRACRANIAL [None]
  - SINUS BRADYCARDIA [None]
  - UNEVALUABLE EVENT [None]
